FAERS Safety Report 4678116-4 (Version None)
Quarter: 2005Q2

REPORT INFORMATION
  Report Type: 
  Country: None (occurrence: None)
  Receive Date: 20050527
  Receipt Date: 20050517
  Transmission Date: 20051028
  Serious: Yes (Life-Threatening, Other)
  Sender: FDA-Public Use
  Company Number: 2005076797

PATIENT
  Sex: Female

DRUGS (5)
  1. NORVASC [Suspect]
     Indication: ILL-DEFINED DISORDER
     Dosage: 190 MG , ORAL
     Route: 048
     Dates: start: 20050516
  2. MEILAX (ETHYL LOFLAZEPATE) [Suspect]
     Indication: ILL-DEFINED DISORDER
     Dosage: 16 MG , ORAL
     Route: 048
     Dates: start: 20050516
  3. ALESION (EPEINASTINE HYDROCHLORIDE) [Suspect]
     Indication: ILL-DEFINED DISORDER
     Dosage: 240 MG, ORAL
     Route: 048
     Dates: start: 20050516
  4. DIGESTIVES, INCL ENZYMES (DIGESTIVES, INCL ENZYMES) [Suspect]
     Indication: ILL-DEFINED DISORDER
     Dosage: ORAL
     Route: 048
     Dates: start: 20050516
  5. ALCOHOL (ETHANOL) [Suspect]
     Indication: ILL-DEFINED DISORDER
     Dates: start: 20050516

REACTIONS (6)
  - ALCOHOL USE [None]
  - BLOOD PRESSURE SYSTOLIC DECREASED [None]
  - INTENTIONAL MISUSE [None]
  - METABOLIC ACIDOSIS [None]
  - MULTIPLE DRUG OVERDOSE [None]
  - OLIGURIA [None]
